FAERS Safety Report 12730933 (Version 1)
Quarter: 2016Q3

REPORT INFORMATION
  Report Type: Spontaneous
  Country: US (occurrence: US)
  Receive Date: 20160908
  Receipt Date: 20160908
  Transmission Date: 20161109
  Serious: No
  Sender: FDA-Public Use
  Company Number: None

PATIENT
  Age: 39 Year
  Sex: Female
  Weight: 58.97 kg

DRUGS (3)
  1. VITAMINS-ONE A DAY WOMEN [Concomitant]
  2. LEUPROLIDE ACETATE. [Suspect]
     Active Substance: LEUPROLIDE ACETATE
     Indication: ENDOMETRIOSIS
     Dates: start: 20160729
  3. MICROGESTIN [Concomitant]
     Active Substance: ETHINYL ESTRADIOL\NORETHINDRONE ACETATE

REACTIONS (10)
  - Memory impairment [None]
  - Weight decreased [None]
  - Arthralgia [None]
  - Nausea [None]
  - Anxiety [None]
  - Headache [None]
  - Fatigue [None]
  - Insomnia [None]
  - Myalgia [None]
  - Panic attack [None]

NARRATIVE: CASE EVENT DATE: 20160808
